FAERS Safety Report 16568050 (Version 7)
Quarter: 2019Q4

REPORT INFORMATION
  Report Type: Spontaneous
  Country: US (occurrence: US)
  Receive Date: 20190712
  Receipt Date: 20191008
  Transmission Date: 20200122
  Serious: Yes (Hospitalization)
  Sender: FDA-Public Use
  Company Number: US-ACTELION-A-NJ2019-192775

PATIENT
  Sex: Female
  Weight: 5.9 kg

DRUGS (4)
  1. REMODULIN [Concomitant]
     Active Substance: TREPROSTINIL
     Dosage: 12 NG/KG, PER MIN
     Route: 042
  2. REVATIO [Concomitant]
     Active Substance: SILDENAFIL CITRATE
  3. TRACLEER [Suspect]
     Active Substance: BOSENTAN
     Indication: PULMONARY HYPERTENSION
     Dosage: 16 MG, BID
     Route: 048
     Dates: end: 20190726
  4. OXYGEN. [Concomitant]
     Active Substance: OXYGEN

REACTIONS (15)
  - Body temperature increased [Unknown]
  - Dyspnoea [Unknown]
  - Feeling abnormal [Unknown]
  - Diarrhoea [Unknown]
  - Adverse event [Unknown]
  - Vomiting [Unknown]
  - Rash [Unknown]
  - Liver function test abnormal [Unknown]
  - Pulmonary hypertension [Unknown]
  - Respiratory tract infection viral [Unknown]
  - Cough [Unknown]
  - Malaise [Unknown]
  - Oxygen consumption decreased [Unknown]
  - Enterovirus infection [Unknown]
  - Electrolyte imbalance [Unknown]
